FAERS Safety Report 7368724-4 (Version None)
Quarter: 2011Q1

REPORT INFORMATION
  Report Type: 
  Country: None (occurrence: None)
  Receive Date: 20110323
  Receipt Date: 20100908
  Transmission Date: 20110831
  Serious: Yes (Hospitalization, Other)
  Sender: FDA-Public Use
  Company Number: US-BAYER-201022873NA

PATIENT
  Sex: Female
  Weight: 54.422 kg

DRUGS (9)
  1. YASMIN [Suspect]
     Indication: PREMENSTRUAL SYNDROME
     Route: 048
  2. UNCODEABLE ^UNCLASSIFIABLE^ [Concomitant]
  3. YAZ [Suspect]
     Route: 048
  4. ACETASOL HC [Concomitant]
  5. PREDNISONE [Concomitant]
  6. FAMVIR [Concomitant]
  7. ZOLPIDEM [Concomitant]
  8. OMEPRAZOLE [Concomitant]
  9. PRILOSEC [Concomitant]

REACTIONS (6)
  - CHOLESTEROSIS [None]
  - CHOLECYSTITIS CHRONIC [None]
  - PAIN [None]
  - GALLBLADDER INJURY [None]
  - BILIARY COLIC [None]
  - CHOLELITHIASIS [None]
